FAERS Safety Report 8046174-5 (Version None)
Quarter: 2012Q1

REPORT INFORMATION
  Report Type: 
  Country: None (occurrence: None)
  Receive Date: 20120113
  Receipt Date: 20120106
  Transmission Date: 20120608
  Serious: Yes (Other)
  Sender: FDA-Public Use
  Company Number: FR-BRISTOL-MYERS SQUIBB COMPANY-16339939

PATIENT
  Sex: Male

DRUGS (3)
  1. ABILIFY [Suspect]
     Indication: MERYCISM
     Dosage: DOSE REDUCED TO 5 MG AND THEN 5 MG EVERY OTHER DAY AND ABILIFY 5 MG WAS ADMINISTRATED TWICE A WEEK.
     Dates: start: 20070101
  2. ABILIFY [Suspect]
     Indication: OBSESSIVE-COMPULSIVE DISORDER
     Dosage: DOSE REDUCED TO 5 MG AND THEN 5 MG EVERY OTHER DAY AND ABILIFY 5 MG WAS ADMINISTRATED TWICE A WEEK.
     Dates: start: 20070101
  3. ABILIFY [Suspect]
     Indication: ANXIETY
     Dosage: DOSE REDUCED TO 5 MG AND THEN 5 MG EVERY OTHER DAY AND ABILIFY 5 MG WAS ADMINISTRATED TWICE A WEEK.
     Dates: start: 20070101

REACTIONS (3)
  - TARDIVE DYSKINESIA [None]
  - TREMOR [None]
  - RESTLESS LEGS SYNDROME [None]
